FAERS Safety Report 18083029 (Version 1)
Quarter: 2020Q3

REPORT INFORMATION
  Report Type: Spontaneous
  Country: US (occurrence: US)
  Receive Date: 20200729
  Receipt Date: 20200729
  Transmission Date: 20201103
  Serious: No
  Sender: FDA-Public Use
  Company Number: US-GW PHARMA-202007USGW02599

PATIENT

DRUGS (2)
  1. EPIDIOLEX [Suspect]
     Active Substance: CANNABIDIOL
     Dosage: WEANED OFF THE MEDICATION
     Dates: start: 202002, end: 20200401
  2. EPIDIOLEX [Suspect]
     Active Substance: CANNABIDIOL
     Indication: EPILEPSY
     Dosage: 500 MILLIGRAM, BID
     Dates: start: 201909, end: 2020

REACTIONS (7)
  - Product use in unapproved indication [Recovered/Resolved]
  - Seizure [Unknown]
  - Drug ineffective [Unknown]
  - Insomnia [Unknown]
  - Incorrect route of product administration [Recovered/Resolved]
  - Restlessness [Unknown]
  - Initial insomnia [Unknown]

NARRATIVE: CASE EVENT DATE: 201909
